FAERS Safety Report 25926150 (Version 1)
Quarter: 2025Q4

REPORT INFORMATION
  Report Type: Spontaneous
  Country: EU (occurrence: EU)
  Receive Date: 20251015
  Receipt Date: 20251015
  Transmission Date: 20260118
  Serious: Yes (Hospitalization)
  Sender: ELI LILLY AND COMPANY
  Company Number: EU-ELI_LILLY_AND_COMPANY-IT202510011842

PATIENT
  Age: 66 Year
  Sex: Female

DRUGS (3)
  1. TIRZEPATIDE [Interacting]
     Active Substance: TIRZEPATIDE
     Indication: Obesity
     Dosage: 2.5 MG, WEEKLY (1/W)
     Route: 058
  2. WARFARIN [Interacting]
     Active Substance: WARFARIN
     Indication: Product used for unknown indication
     Dosage: 5 MG, DAILY
     Route: 065
  3. WARFARIN [Interacting]
     Active Substance: WARFARIN
     Dosage: 7.5 MG, DAILY

REACTIONS (2)
  - Anticoagulation drug level below therapeutic [Recovered/Resolved]
  - Drug interaction [Unknown]
